FAERS Safety Report 7960093-1 (Version None)
Quarter: 2011Q4

REPORT INFORMATION
  Report Type: 
  Country: None (occurrence: None)
  Receive Date: 20111206
  Receipt Date: 20111128
  Transmission Date: 20120403
  Serious: Yes (Other)
  Sender: FDA-Public Use
  Company Number: ES-TEVA-311855ISR

PATIENT
  Age: 5 Year
  Sex: Female

DRUGS (3)
  1. PENICILLIN [Suspect]
  2. IBUPROFEN [Suspect]
  3. ACETAMINOPHEN [Suspect]

REACTIONS (1)
  - TOXIC EPIDERMAL NECROLYSIS [None]
